FAERS Safety Report 5670458-9 (Version None)
Quarter: 2008Q1

REPORT INFORMATION
  Report Type: 
  Country: None (occurrence: None)
  Receive Date: 20080318
  Receipt Date: 20080311
  Transmission Date: 20080703
  Serious: Yes (Other)
  Sender: FDA-Public Use
  Company Number: US-JNJFOC-20080206332

PATIENT
  Age: 83 Year
  Sex: Female
  Weight: 59.88 kg

DRUGS (4)
  1. LEVAQUIN [Suspect]
     Route: 048
  2. LEVAQUIN [Suspect]
     Indication: UPPER RESPIRATORY TRACT INFECTION
     Dosage: FOR 10 DAYS
     Route: 048
  3. INDERAL [Concomitant]
     Indication: HYPERTENSION
     Route: 048
  4. CARDIOGEN [Concomitant]
     Indication: HYPERTENSION
     Route: 048

REACTIONS (3)
  - AGEUSIA [None]
  - ANOSMIA [None]
  - WEIGHT DECREASED [None]
